FAERS Safety Report 10210142 (Version 2)
Quarter: 2014Q4

REPORT INFORMATION
  Report Type: Spontaneous
  Country: CA (occurrence: CA)
  Receive Date: 20140602
  Receipt Date: 20141222
  Transmission Date: 20150528
  Serious: Yes (Hospitalization)
  Sender: FDA-Public Use
  Company Number: CA-009507513-1405CAN014641

PATIENT
  Age: 55 Year
  Sex: Female

DRUGS (2)
  1. POSANOL [Suspect]
     Active Substance: POSACONAZOLE
     Dosage: 200 MG, TID
     Dates: start: 20130926, end: 20141126
  2. POSANOL [Suspect]
     Active Substance: POSACONAZOLE
     Indication: ACUTE MYELOID LEUKAEMIA
     Dosage: DAILY DOSE: 3 TIMES A DAY
     Route: 048
     Dates: start: 201307

REACTIONS (2)
  - Adverse event [Unknown]
  - Pneumonia [Unknown]

NARRATIVE: CASE EVENT DATE: 201412
